FAERS Safety Report 5415135-4 (Version None)
Quarter: 2007Q3

REPORT INFORMATION
  Report Type: 
  Country: None (occurrence: None)
  Receive Date: 20070815
  Receipt Date: 20070620
  Transmission Date: 20080115
  Serious: No
  Sender: FDA-Public Use
  Company Number: A0660009A

PATIENT
  Sex: Male

DRUGS (2)
  1. COREG CR [Suspect]
     Indication: DRUG USE FOR UNKNOWN INDICATION
     Route: 048
  2. COREG [Concomitant]
     Indication: DRUG USE FOR UNKNOWN INDICATION
     Dosage: 6.25MG TWICE PER DAY
     Route: 048

REACTIONS (1)
  - BLOOD PRESSURE INCREASED [None]
